FAERS Safety Report 4480139-5 (Version None)
Quarter: 2004Q4

REPORT INFORMATION
  Report Type: 
  Country: None (occurrence: None)
  Receive Date: 20041018
  Receipt Date: 20041008
  Transmission Date: 20050328
  Serious: No
  Sender: FDA-Public Use
  Company Number: 2004-121138-NL

PATIENT
  Sex: 0

DRUGS (2)
  1. VECURONIUM BROMIDE [Suspect]
  2. ATROPINE [Concomitant]

REACTIONS (1)
  - ANAPHYLACTIC REACTION [None]
